FAERS Safety Report 4434005-1 (Version None)
Quarter: 2004Q3

REPORT INFORMATION
  Report Type: 
  Country: None (occurrence: None)
  Receive Date: 20040825
  Receipt Date: 20040804
  Transmission Date: 20050211
  Serious: Yes (Death)
  Sender: FDA-Public Use
  Company Number: RB-867-2004

PATIENT
  Age: 22 Year
  Sex: Male
  Weight: 68.4932 kg

DRUGS (2)
  1. SUBOXONE [Suspect]
     Indication: DRUG DEPENDENCE
     Dosage: 8 MG DAILY SL
     Dates: start: 20031104, end: 20040726
  2. PAXIL CX [Concomitant]

REACTIONS (2)
  - DRUG DEPENDENCE [None]
  - INJURY ASPHYXIATION [None]
